FAERS Safety Report 17093174 (Version 1)
Quarter: 2019Q4

REPORT INFORMATION
  Report Type: Spontaneous
  Country: GB (occurrence: GB)
  Receive Date: 20191129
  Receipt Date: 20191129
  Transmission Date: 20200122
  Serious: Yes (Hospitalization)
  Sender: FDA-Public Use
  Company Number: GB-TEVA-2019-GB-1143465

PATIENT
  Age: 58 Year
  Sex: Male

DRUGS (2)
  1. ONDANSETRON [Suspect]
     Active Substance: ONDANSETRON
     Dosage: SOLUTION FOR INJECTION AMPOULES. 8MG
     Route: 042
     Dates: start: 20191013
  2. MEROPENEM. [Suspect]
     Active Substance: MEROPENEM
     Dosage: 1 G
     Route: 042
     Dates: start: 20191013

REACTIONS (3)
  - Extravasation [Recovering/Resolving]
  - Peripheral swelling [Unknown]
  - Catheter site pain [Recovering/Resolving]

NARRATIVE: CASE EVENT DATE: 20191015
